FAERS Safety Report 13132206 (Version 1)
Quarter: 2017Q1

REPORT INFORMATION
  Report Type: Spontaneous
  Country: ZA (occurrence: ZA)
  Receive Date: 20170119
  Receipt Date: 20170119
  Transmission Date: 20170428
  Serious: Yes (Life-Threatening, Other)
  Sender: FDA-Public Use
  Company Number: ZA-B.I. PHARMACEUTICALS,INC./RIDGEFIELD-2017-BI-003042

PATIENT
  Age: 25 Year
  Sex: Female

DRUGS (2)
  1. ATROVENT [Suspect]
     Active Substance: IPRATROPIUM BROMIDE
     Indication: STATUS ASTHMATICUS
     Route: 055
  2. FENOTEROL [Concomitant]
     Active Substance: FENOTEROL
     Indication: STATUS ASTHMATICUS
     Route: 055

REACTIONS (5)
  - General physical health deterioration [Recovered/Resolved]
  - Respiratory failure [Recovered/Resolved]
  - Dextrocardia [Recovered/Resolved]
  - Drug ineffective [Unknown]
  - Pneumothorax [Recovered/Resolved]
